FAERS Safety Report 5183073-0 (Version None)
Quarter: 2006Q4

REPORT INFORMATION
  Report Type: 
  Country: None (occurrence: None)
  Receive Date: 20061220
  Receipt Date: 20051209
  Transmission Date: 20070319
  Serious: No
  Sender: FDA-Public Use
  Company Number: US-GLAXOSMITHKLINE-A0585290A

PATIENT
  Age: 72 Year
  Sex: Male

DRUGS (1)
  1. NICODERM CQ [Suspect]
     Dates: end: 20051207

REACTIONS (5)
  - DRUG ADMINISTRATION ERROR [None]
  - DRY MOUTH [None]
  - DRY THROAT [None]
  - DYSGEUSIA [None]
  - INSOMNIA [None]
